FAERS Safety Report 16524344 (Version 9)
Quarter: 2020Q2

REPORT INFORMATION
  Report Type: Spontaneous
  Country: US (occurrence: US)
  Receive Date: 20190702
  Receipt Date: 20200407
  Transmission Date: 20200713
  Serious: No
  Sender: FDA-Public Use
  Company Number: US-ACTELION-A-US2019-191956

PATIENT
  Age: 78 Year
  Sex: Female
  Weight: 72.11 kg

DRUGS (7)
  1. OPSUMIT [Suspect]
     Active Substance: MACITENTAN
     Indication: PULMONARY ARTERIAL HYPERTENSION
     Dosage: 10 MG, QD
     Route: 048
     Dates: start: 20190530
  2. OFEV [Suspect]
     Active Substance: NINTEDANIB
     Dosage: 100 MG, BID
     Route: 065
     Dates: start: 202001
  3. SILDENAFIL CITRATE. [Concomitant]
     Active Substance: SILDENAFIL CITRATE
  4. OFEV [Suspect]
     Active Substance: NINTEDANIB
     Indication: PRODUCT USED FOR UNKNOWN INDICATION
     Dosage: 150 MG, BID
     Route: 065
  5. ALENDRONATE [Suspect]
     Active Substance: ALENDRONATE SODIUM
     Indication: PRODUCT USED FOR UNKNOWN INDICATION
     Route: 065
  6. ORENITRAM [Concomitant]
     Active Substance: TREPROSTINIL
  7. OFEV [Suspect]
     Active Substance: NINTEDANIB
     Dosage: 1 MG, BID
     Route: 065

REACTIONS (11)
  - Weight increased [Unknown]
  - Nausea [Recovered/Resolved]
  - Adverse event [Unknown]
  - Diarrhoea [Recovered/Resolved]
  - Dizziness exertional [Not Recovered/Not Resolved]
  - Peripheral swelling [Unknown]
  - Ligament sprain [Unknown]
  - Anaemia [Unknown]
  - Joint swelling [Unknown]
  - Dizziness [Not Recovered/Not Resolved]
  - Blood pressure diastolic decreased [Unknown]

NARRATIVE: CASE EVENT DATE: 201906
